FAERS Safety Report 15787161 (Version 1)
Quarter: 2019Q1

REPORT INFORMATION
  Report Type: Report from Study
  Country: FR (occurrence: FR)
  Receive Date: 20190103
  Receipt Date: 20190103
  Transmission Date: 20190417
  Serious: Yes (Other)
  Sender: FDA-Public Use
  Company Number: FR-MYLANLABS-2018M1026099

PATIENT
  Age: 80 Year
  Sex: Female

DRUGS (8)
  1. CARFILZOMIB [Suspect]
     Active Substance: CARFILZOMIB
     Dosage: 20 MG, UNK (DOSE REDUCED)
     Route: 042
  2. REVLIMID [Suspect]
     Active Substance: LENALIDOMIDE
     Indication: PLASMA CELL MYELOMA
     Dosage: 10 MG, UNK,20 MG, 3 WEEKS / 4; 10 MG
     Route: 065
     Dates: start: 20160909
  3. CARFILZOMIB [Suspect]
     Active Substance: CARFILZOMIB
     Dosage: 15 MILLIGRAM/SQ. METER (15 MG/M2, DAY 1 AND 15)
     Route: 042
  4. DEXAMETHASONE. [Suspect]
     Active Substance: DEXAMETHASONE
     Dosage: 20 MILLIGRAM,MONDAY AND TUESDAY D1-D15 (SUPPRESSION TO 1 WEEK OUT OF 2)
     Route: 065
  5. DEXAMETHASONE. [Suspect]
     Active Substance: DEXAMETHASONE
     Indication: PLASMA CELL MYELOMA
     Dosage: 10 MG, UNK, DAY 1 AND 15
     Route: 065
  6. CARFILZOMIB [Suspect]
     Active Substance: CARFILZOMIB
     Indication: PLASMA CELL MYELOMA
     Dosage: 20 MILLIGRAM/SQ. METER,DAY ONE AND 15
     Route: 042
  7. DEXAMETHASONE. [Suspect]
     Active Substance: DEXAMETHASONE
     Dosage: 20 MG, QW
     Route: 065
     Dates: start: 20160909
  8. CARFILZOMIB [Suspect]
     Active Substance: CARFILZOMIB
     Dosage: UNK
     Route: 042
     Dates: start: 20160909

REACTIONS (12)
  - Oedema peripheral [Recovering/Resolving]
  - Muscle spasms [Recovering/Resolving]
  - Unevaluable event [Not Recovered/Not Resolved]
  - Skin exfoliation [Recovering/Resolving]
  - Diarrhoea [Recovering/Resolving]
  - Fatigue [Unknown]
  - Constipation [Recovering/Resolving]
  - Pharyngeal oedema [Unknown]
  - Erythema [Unknown]
  - Muscle atrophy [Unknown]
  - Cytopenia [Not Recovered/Not Resolved]
  - Pelvic pain [Recovering/Resolving]

NARRATIVE: CASE EVENT DATE: 20170420
